FAERS Safety Report 23987005 (Version 1)
Quarter: 2024Q2

REPORT INFORMATION
  Report Type: Spontaneous
  Country: US (occurrence: None)
  Receive Date: 20240618
  Receipt Date: 20240618
  Transmission Date: 20240716
  Serious: Yes (unspecified)
  Sender: FDA-Public Use
  Company Number: None

PATIENT
  Age: 38 Year
  Sex: Female
  Weight: 55.8 kg

DRUGS (4)
  1. CETRORELIX [Suspect]
     Active Substance: CETRORELIX
     Dosage: OTHER QUANTITY : 1 INJECTION(S);?FREQUENCY : AT BEDTIME;?OTHER ROUTE : INJECT TO STOMACH;?
     Route: 050
     Dates: start: 20240617
  2. GONAL-F [Concomitant]
     Active Substance: FOLLITROPIN
  3. MENOPUR [Concomitant]
     Active Substance: FOLLITROPIN\LUTEINIZING HORMONE
  4. VITAMINS [Concomitant]
     Active Substance: VITAMINS

REACTIONS (4)
  - Pyrexia [None]
  - Asthenia [None]
  - Vaginal haemorrhage [None]
  - Dysuria [None]

NARRATIVE: CASE EVENT DATE: 20240618
